FAERS Safety Report 8095008-1 (Version None)
Quarter: 2012Q1

REPORT INFORMATION
  Report Type: 
  Country: None (occurrence: None)
  Receive Date: 20120131
  Receipt Date: 20120131
  Transmission Date: 20120608
  Serious: Yes (Other)
  Sender: FDA-Public Use
  Company Number: None

PATIENT
  Age: 40 Year
  Sex: Female
  Weight: 58.967 kg

DRUGS (1)
  1. AVELOX [Suspect]
     Indication: SINUSITIS
     Dosage: 1 PILL
     Dates: start: 20111229, end: 20120108

REACTIONS (20)
  - DIZZINESS [None]
  - URTICARIA [None]
  - ODYNOPHAGIA [None]
  - PHOTOPHOBIA [None]
  - SWOLLEN TONGUE [None]
  - HEADACHE [None]
  - PAIN OF SKIN [None]
  - FATIGUE [None]
  - THROAT IRRITATION [None]
  - NAUSEA [None]
  - GINGIVAL SWELLING [None]
  - TONGUE DISCOLOURATION [None]
  - RASH PRURITIC [None]
  - SKIN LESION [None]
  - OROPHARYNGEAL PAIN [None]
  - EMOTIONAL DISORDER [None]
  - CRYING [None]
  - RASH [None]
  - DIARRHOEA [None]
  - PAIN [None]
